FAERS Safety Report 8431669 (Version 8)
Quarter: 2012Q4

REPORT INFORMATION
  Report Type: 
  Country: US (occurrence: US)
  Receive Date: 20120228
  Receipt Date: 20120830
  Transmission Date: 20130627
  Serious: Yes (Hospitalization, Other)
  Sender: FDA-Public Use
  Company Number: US-009507513-1202USA03890

PATIENT

DRUGS (9)
  1. FOSAMAX [Suspect]
     Indication: OSTEOPENIA
     Dosage: 70 mg, QW
     Route: 048
     Dates: start: 2001, end: 200606
  2. FOSAMAX [Suspect]
     Indication: OSTEOPOROSIS
  3. FOSAMAX PLUS D [Suspect]
     Indication: OSTEOPENIA
     Dosage: 70 mg, QW
     Route: 048
     Dates: start: 20060705, end: 2009
  4. CALCIUM (UNSPECIFIED) [Concomitant]
  5. MK-9278 [Concomitant]
  6. ASCORBIC ACID [Concomitant]
  7. CORTICOSTEROIDS (UNSPECIFIED) [Concomitant]
     Dates: start: 1997
  8. HUMIRA [Concomitant]
     Indication: RHEUMATOID ARTHRITIS
     Dosage: UNK
     Route: 058
  9. ATENOLOL [Concomitant]
     Indication: PRODUCT USED FOR UNKNOWN INDICATION
     Dosage: UNK
     Dates: start: 200012

REACTIONS (29)
  - Femur fracture [Unknown]
  - Arthropathy [Unknown]
  - Asthma [Unknown]
  - Synovial disorder [Unknown]
  - Infection [Unknown]
  - Ankle fracture [Unknown]
  - Limb discomfort [Unknown]
  - Limb discomfort [Unknown]
  - Low turnover osteopathy [Unknown]
  - Depression [Unknown]
  - Anxiety [Unknown]
  - Poor quality sleep [Unknown]
  - Fear [Unknown]
  - Muscular weakness [Unknown]
  - Gait disturbance [Unknown]
  - Fall [Unknown]
  - Hypertension [Unknown]
  - Compression fracture [Unknown]
  - Nephrolithiasis [Unknown]
  - Arthritis [Unknown]
  - Blood cholesterol increased [Unknown]
  - Cardiac disorder [Unknown]
  - Haematoma [Unknown]
  - Thyroid disorder [Not Recovered/Not Resolved]
  - Depression [Unknown]
  - Stress [Unknown]
  - Intramedullary rod insertion [Unknown]
  - Bursitis [Unknown]
  - Soft tissue mass [Unknown]
